FAERS Safety Report 20965868 (Version 2)
Quarter: 2022Q4

REPORT INFORMATION
  Report Type: Other
  Country: BE (occurrence: None)
  Receive Date: 20220616
  Receipt Date: 20221021
  Transmission Date: 20230113
  Serious: Yes (Other)
  Sender: FDA-Public Use
  Company Number: BE-ROCHE-3077729

PATIENT
  Age: 42 Year
  Sex: Female
  Weight: 53 kg

DRUGS (21)
  1. OCRELIZUMAB [Suspect]
     Active Substance: OCRELIZUMAB
     Indication: Relapsing-remitting multiple sclerosis
     Route: 042
     Dates: start: 20200828
  2. OCRELIZUMAB [Suspect]
     Active Substance: OCRELIZUMAB
     Route: 042
     Dates: start: 20220408, end: 20220408
  3. OCRELIZUMAB [Suspect]
     Active Substance: OCRELIZUMAB
     Route: 042
     Dates: start: 20210910, end: 20210910
  4. OCRELIZUMAB [Suspect]
     Active Substance: OCRELIZUMAB
     Route: 042
     Dates: start: 20210312, end: 20210312
  5. OCRELIZUMAB [Suspect]
     Active Substance: OCRELIZUMAB
     Route: 042
     Dates: start: 20200911, end: 20200911
  6. AMISULPRIDE [Concomitant]
     Active Substance: AMISULPRIDE
     Indication: Anxiety
     Route: 048
     Dates: start: 20200529
  7. RIVOTRIL [Concomitant]
     Active Substance: CLONAZEPAM
     Indication: Multiple sclerosis
     Dosage: 5 GTT
     Route: 048
     Dates: start: 202006
  8. CHOLECALCIFEROL [Concomitant]
     Active Substance: CHOLECALCIFEROL
     Indication: Prophylaxis
     Route: 048
     Dates: start: 20200909
  9. IBUPROFEN [Concomitant]
     Active Substance: IBUPROFEN
     Indication: Adverse event
     Route: 048
     Dates: start: 20201001
  10. FIT-O-TRANS FORTE [Concomitant]
     Indication: Multiple sclerosis
     Dosage: 1 U
     Route: 048
     Dates: start: 20210304
  11. ETILEFRINE HYDROCHLORIDE [Concomitant]
     Active Substance: ETILEFRINE HYDROCHLORIDE
     Indication: Adverse event
     Route: 048
     Dates: start: 202101
  12. VENLAFAXINE [Concomitant]
     Active Substance: VENLAFAXINE HYDROCHLORIDE
     Route: 048
     Dates: start: 202104
  13. ZOLPIDEM [Concomitant]
     Active Substance: ZOLPIDEM TARTRATE
     Indication: Insomnia
     Route: 048
     Dates: start: 202104
  14. FOLIC ACID [Concomitant]
     Active Substance: FOLIC ACID
     Indication: Prophylaxis
     Route: 048
     Dates: start: 202106
  15. BEFACT FORTE [Concomitant]
     Indication: Prophylaxis
     Dosage: 1 U (UNIT)
     Route: 048
     Dates: start: 20210304
  16. SUFENTANIL [Concomitant]
     Active Substance: SUFENTANIL
  17. PROPOFOL [Concomitant]
     Active Substance: PROPOFOL
  18. ROCURONIUM [Concomitant]
     Active Substance: ROCURONIUM BROMIDE
  19. SEVOFLURANE [Concomitant]
     Active Substance: SEVOFLURANE
  20. SUGAMMADEX [Concomitant]
     Active Substance: SUGAMMADEX
  21. ACETAMINOPHEN [Concomitant]
     Active Substance: ACETAMINOPHEN
     Indication: Adverse event
     Route: 048
     Dates: start: 20220124, end: 20220218

REACTIONS (2)
  - Facial bones fracture [Recovered/Resolved]
  - COVID-19 [Recovered/Resolved]

NARRATIVE: CASE EVENT DATE: 20220124
